FAERS Safety Report 9493204 (Version 1)
Quarter: 2013Q3

REPORT INFORMATION
  Report Type: Spontaneous
  Country: US (occurrence: US)
  Receive Date: 20130902
  Receipt Date: 20130902
  Transmission Date: 20140515
  Serious: Yes (Hospitalization, Other)
  Sender: FDA-Public Use
  Company Number: US-ACCORD-019141

PATIENT
  Age: 30 Year
  Sex: Female

DRUGS (5)
  1. MYCOPHENOLATE MOFETIL [Suspect]
     Indication: IMMUNOSUPPRESSION
  2. TACROLIMUS [Suspect]
     Indication: IMMUNOSUPPRESSION
  3. PREDNISONE [Suspect]
     Indication: IMMUNOSUPPRESSION
  4. PENTAMIDINE [Concomitant]
     Indication: ANTIFUNGAL PROPHYLAXIS
  5. VALGANCICLOVIR [Concomitant]
     Indication: ANTIVIRAL PROPHYLAXIS

REACTIONS (8)
  - Pneumonia [Recovering/Resolving]
  - Pericardial effusion [Recovered/Resolved]
  - Dysphonia [Recovering/Resolving]
  - Mediastinal mass [Recovering/Resolving]
  - Cardiac tamponade [Recovered/Resolved]
  - Renal failure acute [Recovered/Resolved]
  - Nocardiosis [Recovering/Resolving]
  - Mycobacterium fortuitum infection [Unknown]
